FAERS Safety Report 14260061 (Version 1)
Quarter: 2017Q4

REPORT INFORMATION
  Report Type: Spontaneous
  Country: CA (occurrence: CA)
  Receive Date: 20171207
  Receipt Date: 20171207
  Transmission Date: 20180321
  Serious: Yes (Death, Hospitalization)
  Sender: FDA-Public Use
  Company Number: CA-NAPPMUNDI-CAN-2017-0008158

PATIENT
  Age: 78 Year
  Sex: Male

DRUGS (6)
  1. MORPHINE SULFATE. [Suspect]
     Active Substance: MORPHINE SULFATE
     Indication: ARTHRALGIA
  2. EPOETIN ALFA [Concomitant]
     Active Substance: ERYTHROPOIETIN
     Dosage: 60 DF, UNK
  3. EPOETIN ALFA [Concomitant]
     Active Substance: ERYTHROPOIETIN
     Dosage: 40 DF, UNK
  4. MORPHINE SULFATE. [Suspect]
     Active Substance: MORPHINE SULFATE
     Indication: PAIN IN EXTREMITY
     Dosage: 1 EVERY 4 HOUR(S)
     Route: 065
  5. MORPHINE SULFATE. [Suspect]
     Active Substance: MORPHINE SULFATE
     Indication: BACK PAIN
  6. MORPHINE SULFATE. [Suspect]
     Active Substance: MORPHINE SULFATE
     Indication: ABDOMINAL PAIN UPPER

REACTIONS (24)
  - Loss of consciousness [Fatal]
  - Pain in extremity [Fatal]
  - Vomiting [Fatal]
  - Anaemia [Fatal]
  - Back pain [Fatal]
  - Dizziness [Fatal]
  - Eating disorder [Fatal]
  - Concomitant disease aggravated [Fatal]
  - Dehydration [Fatal]
  - Drug ineffective [Fatal]
  - Splenomegaly [Fatal]
  - Weight increased [Fatal]
  - Abdominal pain [Fatal]
  - Abdominal pain upper [Fatal]
  - Night sweats [Fatal]
  - Pain [Fatal]
  - Death [Fatal]
  - Asthenia [Fatal]
  - Weight decreased [Fatal]
  - Decreased appetite [Fatal]
  - Joint swelling [Fatal]
  - Arthralgia [Fatal]
  - Muscle spasms [Fatal]
  - Skin discolouration [Fatal]
